FAERS Safety Report 8326552-7 (Version None)
Quarter: 2012Q2

REPORT INFORMATION
  Report Type: 
  Country: None (occurrence: None)
  Receive Date: 20120501
  Receipt Date: 20110606
  Transmission Date: 20120825
  Serious: No
  Sender: FDA-Public Use
  Company Number: US-SANOFI-AVENTIS-2011SA039261

PATIENT
  Age: 78 Year
  Sex: Female

DRUGS (3)
  1. APIDRA [Suspect]
     Dosage: 12-14 UNITS PER DAY
     Route: 058
     Dates: start: 20100101
  2. TYLENOL (CAPLET) [Concomitant]
  3. SOLOSTAR [Suspect]
     Dates: start: 20100101

REACTIONS (2)
  - MUSCLE RUPTURE [None]
  - FALL [None]
